FAERS Safety Report 8586275-6 (Version None)
Quarter: 2012Q3

REPORT INFORMATION
  Report Type: 
  Country: None (occurrence: None)
  Receive Date: 20120810
  Receipt Date: 20120731
  Transmission Date: 20120928
  Serious: Yes (Disabling)
  Sender: FDA-Public Use
  Company Number: FR-ROCHE-1097543

PATIENT
  Sex: Female
  Weight: 70.098 kg

DRUGS (4)
  1. SYMBICORT [Concomitant]
  2. XOLAIR [Suspect]
     Indication: URTICARIA CHRONIC
     Route: 058
     Dates: start: 20090601
  3. SINGULAIR [Concomitant]
  4. PERSANTINE [Concomitant]

REACTIONS (8)
  - DYSAESTHESIA [None]
  - ASTHMA [None]
  - URTICARIA [None]
  - ARTHRALGIA [None]
  - MYALGIA [None]
  - SCIATICA [None]
  - BACK PAIN [None]
  - PAIN IN EXTREMITY [None]
